FAERS Safety Report 19447556 (Version 1)
Quarter: 2021Q2

REPORT INFORMATION
  Report Type: Spontaneous
  Country: US (occurrence: US)
  Receive Date: 20210621
  Receipt Date: 20210621
  Transmission Date: 20210717
  Serious: No
  Sender: FDA-Public Use
  Company Number: None

PATIENT
  Age: 48 Year
  Sex: Male
  Weight: 94.5 kg

DRUGS (5)
  1. METOPROLOL. [Concomitant]
     Active Substance: METOPROLOL
  2. PRILOSEC [Concomitant]
     Active Substance: OMEPRAZOLE MAGNESIUM
  3. PFIZER?BIONTECH COVID?19 VACCINE [Suspect]
     Active Substance: TOZINAMERAN
  4. VISTARIL [Concomitant]
     Active Substance: HYDROXYZINE PAMOATE
  5. DIAZEPAM. [Suspect]
     Active Substance: DIAZEPAM
     Indication: ANXIETY
     Route: 048
     Dates: start: 20190601

REACTIONS (12)
  - Heart rate increased [None]
  - Nausea [None]
  - Abdominal pain upper [None]
  - Dyspnoea [None]
  - Palpitations [None]
  - Headache [None]
  - Hyperhidrosis [None]
  - Hot flush [None]
  - Dizziness [None]
  - Syncope [None]
  - Hypoaesthesia [None]
  - Ear discomfort [None]

NARRATIVE: CASE EVENT DATE: 20210609
